FAERS Safety Report 24772379 (Version 1)
Quarter: 2024Q4

REPORT INFORMATION
  Report Type: Spontaneous
  Country: CO (occurrence: CO)
  Receive Date: 20241224
  Receipt Date: 20241224
  Transmission Date: 20250114
  Serious: Yes (Hospitalization)
  Sender: NOVARTIS
  Company Number: CO-002147023-NVSC2024CO241745

PATIENT

DRUGS (1)
  1. OFATUMUMAB [Suspect]
     Active Substance: OFATUMUMAB
     Indication: Product used for unknown indication
     Dosage: UNK (6 MONTHS AGO)
     Route: 065

REACTIONS (3)
  - Disease progression [Unknown]
  - Disease recurrence [Not Recovered/Not Resolved]
  - Treatment failure [Unknown]
